FAERS Safety Report 21993396 (Version 1)
Quarter: 2023Q1

REPORT INFORMATION
  Report Type: Spontaneous
  Country: JP (occurrence: JP)
  Receive Date: 20230215
  Receipt Date: 20230215
  Transmission Date: 20230418
  Serious: Yes (Other)
  Sender: FDA-Public Use
  Company Number: JP-DSJP-DSJ-2023-105118

PATIENT

DRUGS (15)
  1. BEVACIZUMAB [Suspect]
     Active Substance: BEVACIZUMAB
     Indication: Colon cancer
     Dosage: 5 MILLIGRAM/KILOGRAM
     Route: 065
  2. BEVACIZUMAB [Suspect]
     Active Substance: BEVACIZUMAB
     Dosage: 5 MILLIGRAM/KILOGRAM
     Route: 065
  3. OXALIPLATIN [Concomitant]
     Active Substance: OXALIPLATIN
     Dosage: 85 MILLIGRAM/SQ. METER
     Route: 065
  4. LEVOLEUCOVORIN CALCIUM [Concomitant]
     Active Substance: LEVOLEUCOVORIN CALCIUM
     Dosage: 200 MILLIGRAM/SQ. METER
     Route: 065
  5. LEVOLEUCOVORIN CALCIUM [Concomitant]
     Active Substance: LEVOLEUCOVORIN CALCIUM
     Dosage: 200 MILLIGRAM/SQ. METER
     Route: 065
  6. FLUOROURACIL [Concomitant]
     Active Substance: FLUOROURACIL
     Dosage: 400 MILLIGRAM/SQ. METER
     Route: 040
  7. FLUOROURACIL [Concomitant]
     Active Substance: FLUOROURACIL
     Dosage: 2400 MILLIGRAM/SQ. METER
     Route: 041
  8. FLUOROURACIL [Concomitant]
     Active Substance: FLUOROURACIL
     Dosage: 400 MILLIGRAM/SQ. METER
     Route: 040
  9. FLUOROURACIL [Concomitant]
     Active Substance: FLUOROURACIL
     Dosage: 2400 MILLIGRAM/SQ. METER
     Route: 041
  10. IRINOTECAN [Concomitant]
     Active Substance: IRINOTECAN
     Dosage: 150 MILLIGRAM/SQ. METER
     Route: 065
  11. FUROSEMIDE [Concomitant]
     Active Substance: FUROSEMIDE
     Dosage: 20MG/DAY
     Route: 065
  12. NIFEDIPINE [Concomitant]
     Active Substance: NIFEDIPINE
     Dosage: 40MG/DAY
     Route: 065
  13. NITROGLYCERIN [Concomitant]
     Active Substance: NITROGLYCERIN
     Dosage: 50MG/DAY
     Route: 065
  14. IMIDAPRIL [Concomitant]
     Active Substance: IMIDAPRIL
     Dosage: 5MG/DAY
     Route: 065
  15. IMIDAPRIL [Concomitant]
     Active Substance: IMIDAPRIL
     Dosage: 5MG/DAY
     Route: 065

REACTIONS (3)
  - Interstitial lung disease [Unknown]
  - Proteinuria [Unknown]
  - Duodenal stenosis [Unknown]
